FAERS Safety Report 6026006-7 (Version None)
Quarter: 2009Q1

REPORT INFORMATION
  Report Type: 
  Country: None (occurrence: None)
  Receive Date: 20090102
  Receipt Date: 20081201
  Transmission Date: 20090719
  Serious: No
  Sender: FDA-Public Use
  Company Number: US-BAYER-200839936NA

PATIENT
  Age: 50 Year
  Sex: Female

DRUGS (1)
  1. MENOSTAR [Suspect]
     Indication: LIBIDO DECREASED
     Route: 062
     Dates: start: 20080101

REACTIONS (3)
  - NASAL OEDEMA [None]
  - NO ADVERSE EVENT [None]
  - OEDEMA PERIPHERAL [None]
